FAERS Safety Report 18957738 (Version 1)
Quarter: 2021Q1

REPORT INFORMATION
  Report Type: Spontaneous
  Country: US (occurrence: US)
  Receive Date: 20210302
  Receipt Date: 20210302
  Transmission Date: 20210420
  Serious: Yes (Death, Life-Threatening, Hospitalization, Other)
  Sender: FDA-Public Use
  Company Number: US-MACLEODS PHARMACEUTICALS US LTD-MAC2021030313

PATIENT

DRUGS (1)
  1. AMLODIPINE [Suspect]
     Active Substance: AMLODIPINE BESYLATE
     Indication: PRODUCT USED FOR UNKNOWN INDICATION
     Dosage: UNK, INGESTION OF ?HALF A BOTTLE? OF AMLODIPINE
     Route: 048

REACTIONS (5)
  - Intentional overdose [Fatal]
  - Cardiac failure [Fatal]
  - Toxicity to various agents [Fatal]
  - Respiratory failure [Fatal]
  - Circulatory collapse [Fatal]
